FAERS Safety Report 9048687 (Version 1)
Quarter: 2013Q1

REPORT INFORMATION
  Report Type: Spontaneous
  Country: US (occurrence: None)
  Receive Date: 20130130
  Receipt Date: 20130130
  Transmission Date: 20140127
  Serious: No
  Sender: FDA-Public Use
  Company Number: None

PATIENT
  Age: 50 Year
  Sex: Female
  Weight: 79.9 kg

DRUGS (1)
  1. GEODON 20MG [Suspect]
     Indication: AGITATION
     Dosage: ONE TIME ORDER
     Route: 030
     Dates: start: 20121231, end: 20121231

REACTIONS (3)
  - Dysarthria [None]
  - Dyspnoea [None]
  - Tongue disorder [None]
